FAERS Safety Report 5165809-8 (Version None)
Quarter: 2006Q4

REPORT INFORMATION
  Report Type: 
  Country: None (occurrence: None)
  Receive Date: 20061128
  Receipt Date: 20061114
  Transmission Date: 20070319
  Serious: Yes (Death, Hospitalization)
  Sender: FDA-Public Use
  Company Number: RENA-11876

PATIENT
  Age: 73 Year
  Sex: Male

DRUGS (9)
  1. RENAGEL [Suspect]
     Indication: HYPERPHOSPHATAEMIA
     Dosage: 2.4 G TID PO
     Route: 048
     Dates: start: 20050830, end: 20051121
  2. NEORECORMON [Concomitant]
  3. ALFACALCIDOL [Concomitant]
  4. VENOFER [Concomitant]
  5. VERAPAMIL [Concomitant]
  6. FUROSEMIDE [Concomitant]
  7. KETOTIFEN [Concomitant]
  8. RANITIDINE [Concomitant]
  9. AMLODIPINE [Concomitant]

REACTIONS (2)
  - ACIDOSIS [None]
  - INTESTINAL OBSTRUCTION [None]
